FAERS Safety Report 18114901 (Version 1)
Quarter: 2020Q3

REPORT INFORMATION
  Report Type: Spontaneous
  Country: US (occurrence: US)
  Receive Date: 20200805
  Receipt Date: 20200805
  Transmission Date: 20201103
  Serious: Yes (Other)
  Sender: FDA-Public Use
  Company Number: US-TEVA-2020-US-1811165

PATIENT
  Sex: Female

DRUGS (11)
  1. NORCO [Suspect]
     Active Substance: ACETAMINOPHEN\HYDROCODONE BITARTRATE
     Route: 065
  2. OXYCONTIN [Suspect]
     Active Substance: OXYCODONE HYDROCHLORIDE
     Route: 065
  3. BUTRANS [Suspect]
     Active Substance: BUPRENORPHINE
     Route: 065
  4. METHADONE [Suspect]
     Active Substance: METHADONE HYDROCHLORIDE
     Route: 065
  5. OXYCODONE [Suspect]
     Active Substance: OXYCODONE
     Route: 065
  6. HYDROCODONE [Suspect]
     Active Substance: HYDROCODONE
     Route: 065
  7. TRAMADOL. [Suspect]
     Active Substance: TRAMADOL
     Route: 065
  8. KLONOPIN [Suspect]
     Active Substance: CLONAZEPAM
     Route: 065
  9. MS CONTIN [Suspect]
     Active Substance: MORPHINE SULFATE
     Route: 065
  10. MSIR [Suspect]
     Active Substance: MORPHINE SULFATE
     Route: 065
  11. DILAUDID [Suspect]
     Active Substance: HYDROMORPHONE HYDROCHLORIDE
     Route: 065

REACTIONS (4)
  - Adverse event [Unknown]
  - Job dissatisfaction [Unknown]
  - Impaired work ability [Unknown]
  - Suicidal ideation [Unknown]
